FAERS Safety Report 18050449 (Version 2)
Quarter: 2020Q3

REPORT INFORMATION
  Report Type: Report from Study
  Country: GB (occurrence: GB)
  Receive Date: 20200721
  Receipt Date: 20200806
  Transmission Date: 20201103
  Serious: Yes (Death, Hospitalization)
  Sender: FDA-Public Use
  Company Number: NVSC2020GB187367

PATIENT

DRUGS (4)
  1. BLINDED ACZ885 [Suspect]
     Active Substance: CANAKINUMAB
     Indication: HEPATITIS ALCOHOLIC
     Dosage: CODE NOT BROKEN
     Route: 042
     Dates: start: 20190815, end: 20190815
  2. BLINDED NO TREATMENT RECEIVED [Suspect]
     Active Substance: INVESTIGATIONAL PRODUCT
     Indication: HEPATITIS ALCOHOLIC
     Dosage: CODE NOT BROKEN
     Route: 042
     Dates: start: 20190815, end: 20190815
  3. BLINDED ACZ885 [Suspect]
     Active Substance: CANAKINUMAB
     Indication: HEPATITIS ALCOHOLIC
     Dosage: CODE NOT BROKEN
     Route: 042
     Dates: start: 20190815, end: 20190815
  4. PLACEBO [Suspect]
     Active Substance: UNSPECIFIED INGREDIENT
     Indication: HEPATITIS ALCOHOLIC
     Dosage: CODE NOT BROKEN
     Route: 042
     Dates: start: 20190815, end: 20190815

REACTIONS (4)
  - Hepatic cirrhosis [Fatal]
  - Urinary tract infection [Recovered/Resolved]
  - Hepatic cirrhosis [Recovered/Resolved]
  - Bacterial sepsis [Fatal]

NARRATIVE: CASE EVENT DATE: 20190821
